FAERS Safety Report 14294816 (Version 1)
Quarter: 2017Q4

REPORT INFORMATION
  Report Type: Report from Study
  Country: US (occurrence: US)
  Receive Date: 20171218
  Receipt Date: 20171218
  Transmission Date: 20180321
  Serious: Yes (Other)
  Sender: FDA-Public Use
  Company Number: US-ROCHE-2041540

PATIENT
  Sex: Male
  Weight: 89.72 kg

DRUGS (10)
  1. PROAIR HFA [Concomitant]
     Active Substance: ALBUTEROL SULFATE
     Dosage: 108 (90 BASE) MCG/ACT AEROSOL SOLUTION 2 PUFFS AS NEEDED EVERY 4 HRS
     Route: 065
  2. CEFDINIR. [Concomitant]
     Active Substance: CEFDINIR
     Route: 065
  3. OXYGEN PER NASAL CANNULA [Concomitant]
     Dosage: 100% FIO2
     Route: 065
  4. ESBRIET [Suspect]
     Active Substance: PIRFENIDONE
     Indication: IDIOPATHIC PULMONARY FIBROSIS
     Dosage: ONGOING:NO?3 TABS BY MOUTH 3 TIMES A DAY WITH MEALS
     Route: 048
  5. SIMVASTATIN. [Concomitant]
     Active Substance: SIMVASTATIN
     Dosage: IN THE EVENING
     Route: 065
  6. BENZONATATE. [Concomitant]
     Active Substance: BENZONATATE
     Dosage: 1 CAPSULE AS NEEDED 3 TIMES A DAY
     Route: 065
  7. ELIQUIS [Concomitant]
     Active Substance: APIXABAN
     Route: 065
  8. TAMULOSIN [Concomitant]
     Active Substance: TAMSULOSIN
     Route: 065
  9. SOTALOL HCL [Concomitant]
     Active Substance: SOTALOL
     Route: 065
  10. OMEPRAZOLE. [Concomitant]
     Active Substance: OMEPRAZOLE
     Route: 065

REACTIONS (3)
  - Cardiac disorder [Unknown]
  - Fatigue [Unknown]
  - Depression [Unknown]
